FAERS Safety Report 10645829 (Version 1)
Quarter: 2014Q4

REPORT INFORMATION
  Report Type: Spontaneous
  Country: JP (occurrence: None)
  Receive Date: 20141209
  Receipt Date: 20141209
  Transmission Date: 20150529
  Serious: Yes (Hospitalization)
  Sender: FDA-Public Use
  Company Number: JP-017678

PATIENT
  Age: 82 Year
  Sex: Male
  Weight: 54 kg

DRUGS (2)
  1. DEGARELIX (DEGARELIX) (240 MG, 480 MG) [Suspect]
     Active Substance: DEGARELIX
     Indication: PROSTATE CANCER
     Dosage: 1X/3 MONTHS
     Route: 058
     Dates: start: 20140421, end: 20140421
  2. URIEF [Concomitant]
     Active Substance: SILODOSIN

REACTIONS (4)
  - Femur fracture [None]
  - Constipation [None]
  - Blood pressure decreased [None]
  - Fall [None]

NARRATIVE: CASE EVENT DATE: 20141030
